FAERS Safety Report 8599019-9 (Version None)
Quarter: 2012Q3

REPORT INFORMATION
  Report Type: 
  Country: None (occurrence: None)
  Receive Date: 20120816
  Receipt Date: 20120813
  Transmission Date: 20120928
  Serious: Yes (Hospitalization)
  Sender: FDA-Public Use
  Company Number: PHHY2012ZA069576

PATIENT
  Sex: Female
  Weight: 69 kg

DRUGS (3)
  1. PACLITAXEL [Suspect]
     Indication: NEOPLASM MALIGNANT
     Dosage: 150 MG, UNK
     Route: 042
     Dates: start: 20120806
  2. HERCEPTIN [Concomitant]
     Dates: start: 20120806
  3. IBANDRONATE SODIUM [Concomitant]
     Dates: start: 20120806

REACTIONS (6)
  - HYPERHIDROSIS [None]
  - BLOOD PRESSURE IMMEASURABLE [None]
  - PULSE PRESSURE DECREASED [None]
  - LOSS OF CONSCIOUSNESS [None]
  - ANAPHYLACTIC REACTION [None]
  - PALLOR [None]
